FAERS Safety Report 8256704-6 (Version None)
Quarter: 2012Q2

REPORT INFORMATION
  Report Type: 
  Country: None (occurrence: None)
  Receive Date: 20120403
  Receipt Date: 20120327
  Transmission Date: 20120825
  Serious: Yes (Hospitalization)
  Sender: FDA-Public Use
  Company Number: PL-UCBSA-043948

PATIENT
  Age: 75 Year
  Sex: Male
  Weight: 74.6 kg

DRUGS (9)
  1. ACIDUM FOLICUM [Concomitant]
     Indication: ANAEMIA PROPHYLAXIS
     Route: 048
     Dates: start: 20080701
  2. KAMIREN [Concomitant]
     Indication: HYPERTONIA
     Route: 048
     Dates: start: 20060601
  3. VITRUM [Concomitant]
     Indication: OSTEOPOROSIS PROPHYLAXIS
     Dosage: 500 MG + 200 IV
     Route: 048
     Dates: start: 20080701
  4. TRAVATAN [Concomitant]
     Indication: GLAUCOMA
     Dosage: 1 DROP DAILY
     Route: 047
     Dates: start: 20050101
  5. ARTEOPTIC [Concomitant]
     Indication: GLAUCOMA
     Dosage: 1 DROP DAILY
     Route: 047
     Dates: start: 20050101
  6. POLPRAZOL [Concomitant]
     Indication: PROPHYLAXIS
     Route: 048
     Dates: start: 20090101
  7. ASPIRIN [Concomitant]
     Indication: CORONARY ARTERY DISEASE
     Route: 048
     Dates: start: 20090101
  8. CERTOLIZUMAB PEGOL [Suspect]
     Indication: RHEUMATOID ARTHRITIS
     Dosage: NO OF DOSES : 39
     Route: 058
     Dates: start: 20100408
  9. BISOPROLOL FUMARATE [Concomitant]
     Indication: CORONARY ARTERY DISEASE
     Route: 048
     Dates: start: 20090101

REACTIONS (1)
  - MYOCARDIAL ISCHAEMIA [None]
